FAERS Safety Report 5886736-4 (Version None)
Quarter: 2008Q3

REPORT INFORMATION
  Report Type: 
  Country: None (occurrence: None)
  Receive Date: 20080917
  Receipt Date: 20080917
  Transmission Date: 20090109
  Serious: Yes (Death, Hospitalization)
  Sender: FDA-Public Use
  Company Number: PHHO2002GB01659

PATIENT
  Sex: Male
  Weight: 94.7 kg

DRUGS (3)
  1. NEORAL [Suspect]
     Indication: RENAL TRANSPLANT
     Dosage: NOT REPORTED
  2. SIMULECT SIC+ [Suspect]
     Indication: RENAL TRANSPLANT
     Dosage: 20 MG, DAY 0
     Route: 042
     Dates: start: 20010901, end: 20010901
  3. SIMULECT SIC+ [Suspect]
     Dosage: 20 MG, DAY 4
     Route: 042
     Dates: start: 20010905, end: 20010905

REACTIONS (8)
  - BLOOD CREATININE INCREASED [None]
  - BLOOD GLUCOSE ABNORMAL [None]
  - CARDIAC ARREST [None]
  - CATHETER REMOVAL [None]
  - COMPLICATIONS OF TRANSPLANTED KIDNEY [None]
  - IMMUNOSUPPRESSANT DRUG LEVEL INCREASED [None]
  - NEPHROPATHY TOXIC [None]
  - RENAL IMPAIRMENT [None]
